FAERS Safety Report 12001197 (Version 2)
Quarter: 2016Q3

REPORT INFORMATION
  Report Type: Spontaneous
  Country: SG (occurrence: SG)
  Receive Date: 20160204
  Receipt Date: 20160720
  Transmission Date: 20161109
  Serious: No
  Sender: FDA-Public Use
  Company Number: SG-MYLANLABS-2016M1004495

PATIENT

DRUGS (1)
  1. TRANEXAMIC ACID. [Suspect]
     Active Substance: TRANEXAMIC ACID
     Indication: GASTROINTESTINAL HAEMORRHAGE
     Route: 065

REACTIONS (1)
  - Off label use [Unknown]
